FAERS Safety Report 12706255 (Version 1)
Quarter: 2016Q3

REPORT INFORMATION
  Report Type: Spontaneous
  Country: IT (occurrence: IT)
  Receive Date: 20160901
  Receipt Date: 20160901
  Transmission Date: 20161109
  Serious: Yes (Hospitalization)
  Sender: FDA-Public Use
  Company Number: IT-AUROBINDO-AUR-APL-2016-10828

PATIENT
  Age: 94 Year
  Sex: Male

DRUGS (4)
  1. ACICLOVIR TABLETS [Suspect]
     Active Substance: ACYCLOVIR
     Indication: HERPES ZOSTER
     Dosage: 4 G, DAILY
     Route: 048
     Dates: start: 20160716, end: 20160723
  2. MEPRAL                             /00661201/ [Concomitant]
     Indication: PRODUCT USED FOR UNKNOWN INDICATION
     Dosage: 20 MG, UNK
     Route: 048
     Dates: start: 20100304, end: 20160723
  3. ASCRIPTIN [Concomitant]
     Active Substance: ASPIRIN
     Indication: PRODUCT USED FOR UNKNOWN INDICATION
     Route: 048
  4. LEVOPRAID                          /00314301/ [Concomitant]
     Active Substance: SULPIRIDE
     Indication: PRODUCT USED FOR UNKNOWN INDICATION
     Route: 065

REACTIONS (9)
  - Confusional state [Unknown]
  - Agitation [Unknown]
  - Psychiatric decompensation [Unknown]
  - Delusion [Unknown]
  - Febrile infection [Unknown]
  - Delirium [Unknown]
  - Substance-induced psychotic disorder [Unknown]
  - Hyponatraemia [Unknown]
  - Disorientation [Unknown]

NARRATIVE: CASE EVENT DATE: 20160723
